FAERS Safety Report 6131550-8 (Version None)
Quarter: 2009Q1

REPORT INFORMATION
  Report Type: 
  Country: None (occurrence: None)
  Receive Date: 20090325
  Receipt Date: 20081002
  Transmission Date: 20090719
  Serious: No
  Sender: FDA-Public Use
  Company Number: US-BRISTOL-MYERS SQUIBB COMPANY-14359053

PATIENT
  Age: 61 Year
  Sex: Female

DRUGS (1)
  1. ERBITUX [Suspect]
     Dates: start: 20080926, end: 20080926

REACTIONS (3)
  - FLUSHING [None]
  - HEART RATE INCREASED [None]
  - HYPERHIDROSIS [None]
